FAERS Safety Report 9065231 (Version 1)
Quarter: 2013Q1

REPORT INFORMATION
  Report Type: Spontaneous
  Country: IT (occurrence: IT)
  Receive Date: 20130214
  Receipt Date: 20130214
  Transmission Date: 20140127
  Serious: Yes (Hospitalization)
  Sender: FDA-Public Use
  Company Number: IT-RANBAXY-2013R1-65171

PATIENT
  Sex: Female

DRUGS (1)
  1. PARACETAMOL [Suspect]
     Indication: PRODUCT USED FOR UNKNOWN INDICATION
     Dosage: UNK
     Route: 065

REACTIONS (3)
  - Sinus tachycardia [Recovering/Resolving]
  - Hypokalaemia [Recovering/Resolving]
  - Nervousness [Recovering/Resolving]
